FAERS Safety Report 12731366 (Version 1)
Quarter: 2016Q3

REPORT INFORMATION
  Report Type: Spontaneous
  Country: GB (occurrence: GB)
  Receive Date: 20160912
  Receipt Date: 20160912
  Transmission Date: 20161109
  Serious: Yes (Hospitalization, Other)
  Sender: FDA-Public Use
  Company Number: GB-CIPLA LTD.-2016GB17972

PATIENT

DRUGS (2)
  1. MESALAZINE [Suspect]
     Active Substance: MESALAMINE
     Indication: CROHN^S DISEASE
     Dosage: UNK
     Route: 065
  2. TENOFOVIR/EMTRICITABINE [Suspect]
     Active Substance: EMTRICITABINE\TENOFOVIR
     Indication: PROPHYLAXIS AGAINST HIV INFECTION
     Dosage: UNK
     Route: 065

REACTIONS (4)
  - Acute kidney injury [Recovered/Resolved]
  - Dehydration [Unknown]
  - Crohn^s disease [Unknown]
  - Hypokalaemia [Unknown]

NARRATIVE: CASE EVENT DATE: 201510
